FAERS Safety Report 17193830 (Version 1)
Quarter: 2019Q4

REPORT INFORMATION
  Report Type: Report from Study
  Country: US (occurrence: US)
  Receive Date: 20191223
  Receipt Date: 20191223
  Transmission Date: 20200122
  Serious: Yes (Hospitalization, Other)
  Sender: FDA-Public Use
  Company Number: US-GILEAD-2019-0443947

PATIENT
  Age: 67 Year
  Sex: Female

DRUGS (1)
  1. IDELALISIB [Suspect]
     Active Substance: IDELALISIB
     Indication: MARGINAL ZONE LYMPHOMA
     Dosage: 150 MG, BID
     Route: 048
     Dates: start: 20190917, end: 20191212

REACTIONS (2)
  - Nausea [Unknown]
  - Cerebrovascular accident [Unknown]

NARRATIVE: CASE EVENT DATE: 20191214
